FAERS Safety Report 5352993-6 (Version None)
Quarter: 2007Q2

REPORT INFORMATION
  Report Type: 
  Country: None (occurrence: None)
  Receive Date: 20070611
  Receipt Date: 20070530
  Transmission Date: 20071010
  Serious: Yes (Life-Threatening, Hospitalization, Disabling, Other)
  Sender: FDA-Public Use
  Company Number: GB-PFIZER INC-2007045082

PATIENT
  Age: 69 Year
  Sex: Female
  Weight: 67 kg

DRUGS (9)
  1. CLINDAMYCIN PHOSPHATE SOLUTION, STERILE [Suspect]
     Route: 042
     Dates: start: 20070213, end: 20070213
  2. MORPHINE SULFATE [Suspect]
     Route: 042
     Dates: start: 20070213, end: 20070213
  3. PATENT BLUE V [Suspect]
     Route: 058
     Dates: start: 20070213, end: 20070213
  4. VECURONIUM BROMIDE [Suspect]
     Route: 042
     Dates: start: 20070213, end: 20070213
  5. ASPIRIN [Concomitant]
     Route: 048
  6. GLYCERYL TRINITRATE [Concomitant]
     Route: 060
  7. ROSUVASTATIN [Concomitant]
  8. LEVOTHYROXINE SODIUM [Concomitant]
     Route: 048
  9. TILDIEM [Concomitant]

REACTIONS (2)
  - ANAPHYLACTIC REACTION [None]
  - TRYPTASE INCREASED [None]
